FAERS Safety Report 10013839 (Version 1)
Quarter: 2014Q1

REPORT INFORMATION
  Report Type: Spontaneous
  Country: FI (occurrence: FI)
  Receive Date: 20140316
  Receipt Date: 20140316
  Transmission Date: 20141002
  Serious: Yes (Death, Other)
  Sender: FDA-Public Use
  Company Number: FI-009507513-1403FIN003898

PATIENT
  Age: 37 Year
  Sex: Male

DRUGS (2)
  1. EMEND [Suspect]
     Indication: PROPHYLAXIS OF NAUSEA AND VOMITING
     Dosage: UNK
     Route: 048
  2. YONDELIS [Interacting]
     Indication: SYNOVIAL SARCOMA
     Dosage: UNK

REACTIONS (5)
  - Hepatic function abnormal [Fatal]
  - Rhabdomyolysis [Fatal]
  - Renal disorder [Fatal]
  - Drug interaction [Unknown]
  - Liver function test abnormal [Unknown]
